FAERS Safety Report 8972058 (Version 1)
Quarter: 2012Q4

REPORT INFORMATION
  Report Type: 
  Country: BB (occurrence: BB)
  Receive Date: 20121218
  Receipt Date: 20121218
  Transmission Date: 20130627
  Serious: Yes (Hospitalization, Other)
  Sender: FDA-Public Use
  Company Number: BB-WATSON-2012-22034

PATIENT
  Age: 33 Year
  Sex: Female

DRUGS (3)
  1. FENTANYL [Suspect]
     Indication: ANALGESIC THERAPY
     Dosage: UNK, unknown
     Route: 042
  2. METFORMIN HYDROCHLORIDE [Suspect]
     Indication: GESTATIONAL DIABETES
     Dosage: UNK, unknown
     Route: 065
  3. METHYLDOPA [Suspect]
     Indication: GESTATIONAL HYPERTENSION
     Dosage: UNK, unknown
     Route: 065

REACTIONS (5)
  - Stillbirth [Recovering/Resolving]
  - Maternal exposure during pregnancy [Recovering/Resolving]
  - Forceps delivery [None]
  - Hepatic haematoma [None]
  - Cardiac tamponade [None]
